FAERS Safety Report 5707521-X (Version None)
Quarter: 2008Q2

REPORT INFORMATION
  Report Type: 
  Country: None (occurrence: None)
  Receive Date: 20080416
  Receipt Date: 20080404
  Transmission Date: 20081010
  Serious: Yes (Other)
  Sender: FDA-Public Use
  Company Number: US-PFIZER INC-2007103366

PATIENT
  Sex: Female
  Weight: 58.5 kg

DRUGS (8)
  1. CHANTIX [Suspect]
     Indication: SMOKING CESSATION THERAPY
     Dosage: TEXT:EVERY DAY
  2. HYDROCODONE BITARTRATE [Suspect]
  3. PERCOCET [Suspect]
  4. ALL OTHER THERAPEUTIC PRODUCTS [Concomitant]
  5. THYROID TAB [Concomitant]
  6. PREVACID [Concomitant]
  7. GABAPENTIN [Concomitant]
  8. SOMA [Concomitant]

REACTIONS (6)
  - ANXIETY [None]
  - DEPRESSION [None]
  - IRRITABILITY [None]
  - PANIC ATTACK [None]
  - SHOULDER OPERATION [None]
  - STRESS [None]
